FAERS Safety Report 8775496 (Version 1)
Quarter: 2012Q4

REPORT INFORMATION
  Report Type: Report from Study
  Country: GB (occurrence: GB)
  Receive Date: 20120911
  Receipt Date: 20120911
  Transmission Date: 20130627
  Serious: Yes (Hospitalization)
  Sender: FDA-Public Use
  Company Number: GB-ROCHE-1115837

PATIENT
  Age: 68 Year
  Sex: Female
  Weight: 43 kg

DRUGS (3)
  1. MABTHERA [Suspect]
     Indication: RHEUMATOID ARTHRITIS
     Dosage: Date of last dose prior to SAE 17/Aug/2011.
     Route: 065
     Dates: start: 20080710
  2. METHOTREXATE [Concomitant]
  3. DEPOMEDRONE [Concomitant]
     Indication: RHEUMATOID ARTHRITIS

REACTIONS (1)
  - Thrombocytosis [Unknown]
